FAERS Safety Report 15245860 (Version 2)
Quarter: 2018Q4

REPORT INFORMATION
  Report Type: Spontaneous
  Country: DE (occurrence: DE)
  Receive Date: 20180806
  Receipt Date: 20181005
  Transmission Date: 20190204
  Serious: Yes (Hospitalization)
  Sender: FDA-Public Use
  Company Number: DE-MYLANLABS-2018M1057860

PATIENT
  Age: 48 Year
  Sex: Male

DRUGS (2)
  1. IMATINIB. [Suspect]
     Active Substance: IMATINIB MESYLATE
     Indication: CHRONIC MYELOID LEUKAEMIA
     Dosage: 400 MG, QD
     Route: 065
  2. DASATINIB. [Concomitant]
     Active Substance: DASATINIB
     Indication: PRODUCT USED FOR UNKNOWN INDICATION
     Dosage: 70 MG, QD, DAILY DOSE:140 MG MILLIGRAM(S) EVERY DAY
     Route: 065

REACTIONS (5)
  - Mucosal ulceration [Unknown]
  - Leukocytosis [Unknown]
  - Cytogenetic abnormality [Unknown]
  - Large intestine perforation [Unknown]
  - Pyrexia [Unknown]
